FAERS Safety Report 6607622-8 (Version None)
Quarter: 2010Q1

REPORT INFORMATION
  Report Type: 
  Country: None (occurrence: None)
  Receive Date: 20100301
  Receipt Date: 20100217
  Transmission Date: 20100710
  Serious: Yes (Death)
  Sender: FDA-Public Use
  Company Number: JP-PFIZER INC-2009287484

PATIENT
  Age: 64 Year
  Sex: Male

DRUGS (4)
  1. VORICONAZOLE [Suspect]
     Indication: ASPERGILLOSIS
     Dosage: 300 MG, UNK
     Route: 041
  2. VORICONAZOLE [Suspect]
     Dosage: 400 MG, 2X/DAY
     Route: 048
  3. MICAFUNGIN SODIUM [Concomitant]
     Indication: ASPERGILLOSIS
     Dosage: UNK
  4. ITRACONAZOLE [Concomitant]
     Indication: ASPERGILLOSIS
     Dosage: UNK

REACTIONS (1)
  - DRUG RESISTANCE [None]
